FAERS Safety Report 4652270-2 (Version None)
Quarter: 2005Q2

REPORT INFORMATION
  Report Type: 
  Country: None (occurrence: None)
  Receive Date: 20050504
  Receipt Date: 20050407
  Transmission Date: 20051028
  Serious: Yes (Other)
  Sender: FDA-Public Use
  Company Number: GB-ROCHE-401430

PATIENT
  Age: 54 Year
  Sex: Male

DRUGS (9)
  1. XELODA [Suspect]
     Indication: COLORECTAL CANCER
     Route: 048
     Dates: start: 20041125
  2. METFORMIN HCL [Concomitant]
     Route: 048
  3. TAMSULOSIN [Concomitant]
     Route: 048
  4. ESCITALOPRAM [Concomitant]
     Route: 048
  5. TADALAFIL [Concomitant]
     Dosage: TAKEN PRN
     Route: 048
  6. GLIBENCLAMIDE [Concomitant]
     Route: 048
  7. ASPIRIN [Concomitant]
     Route: 048
  8. RAMIPRIL [Concomitant]
     Route: 048
  9. STATIN NOS [Concomitant]
     Route: 048

REACTIONS (2)
  - BLOOD CHOLESTEROL INCREASED [None]
  - LIPIDS INCREASED [None]
